FAERS Safety Report 5502733-2 (Version None)
Quarter: 2007Q4

REPORT INFORMATION
  Report Type: 
  Country: None (occurrence: None)
  Receive Date: 20071031
  Receipt Date: 20071025
  Transmission Date: 20080405
  Serious: Yes (Hospitalization)
  Sender: FDA-Public Use
  Company Number: US-ELI_LILLY_AND_COMPANY-US200710006675

PATIENT
  Age: 52 Year
  Sex: Female

DRUGS (1)
  1. ZYPREXA [Suspect]

REACTIONS (2)
  - BLOOD CHOLESTEROL INCREASED [None]
  - MENTAL DISORDER [None]
